FAERS Safety Report 6076752-4 (Version None)
Quarter: 2009Q1

REPORT INFORMATION
  Report Type: 
  Country: None (occurrence: None)
  Receive Date: 20090213
  Receipt Date: 20090113
  Transmission Date: 20090719
  Serious: No
  Sender: FDA-Public Use
  Company Number: US-BAYER-200910143BCC

PATIENT
  Age: 68 Year
  Sex: Female
  Weight: 82 kg

DRUGS (3)
  1. ALEVE [Suspect]
     Indication: PROCEDURAL PAIN
     Dosage: UNIT DOSE: 220 MG
     Dates: start: 20090112
  2. NEXIUM [Concomitant]
  3. AMOXICILLIN [Concomitant]

REACTIONS (2)
  - GINGIVAL SWELLING [None]
  - NAUSEA [None]
